FAERS Safety Report 6487484-2 (Version None)
Quarter: 2009Q4

REPORT INFORMATION
  Report Type: 
  Country: None (occurrence: None)
  Receive Date: 20091210
  Receipt Date: 20090813
  Transmission Date: 20100525
  Serious: No
  Sender: FDA-Public Use
  Company Number: US-AMGEN-KDL360012

PATIENT
  Sex: Male

DRUGS (1)
  1. ENBREL [Suspect]
     Indication: RHEUMATOID ARTHRITIS
     Route: 058
     Dates: start: 20090622

REACTIONS (5)
  - BACK PAIN [None]
  - DIZZINESS [None]
  - INSOMNIA [None]
  - OCULAR HYPERAEMIA [None]
  - VISION BLURRED [None]
